FAERS Safety Report 4853554-5 (Version None)
Quarter: 2005Q4

REPORT INFORMATION
  Report Type: 
  Country: None (occurrence: None)
  Receive Date: 20051214
  Receipt Date: 20051125
  Transmission Date: 20060501
  Serious: No
  Sender: FDA-Public Use
  Company Number: PHBS2005JP17405

PATIENT
  Age: 70 Year
  Sex: Male

DRUGS (14)
  1. MIKELAN (NVO) [Suspect]
     Indication: GLAUCOMA
     Dosage: 2 DF/DAY
     Dates: start: 19960201, end: 19960513
  2. LATANOPROST [Concomitant]
     Indication: GLAUCOMA
     Dosage: 1 DF/DAY
     Dates: start: 20050727, end: 20051121
  3. DORZOLAMIDE HYDROCHLORIDE [Concomitant]
     Indication: GLAUCOMA
     Dosage: 3 DF/DAY
     Dates: start: 20010120
  4. THIAMINE DISULFIDE / B6 /B12 [Concomitant]
     Indication: HYPERTENSION
     Dosage: 2 DF/DAY
     Route: 048
     Dates: start: 19940101
  5. TICLOPIDINE HCL [Concomitant]
     Indication: HYPERTENSION
     Dosage: 100 MG/DAY
     Route: 048
     Dates: start: 19940101
  6. AMLODIPINE BESYLATE [Concomitant]
     Indication: HYPERTENSION
     Dosage: 5 MG/DAY
     Route: 048
     Dates: start: 19940101
  7. CYANOCOBALAMIN [Concomitant]
     Indication: ASTHENOPIA
     Dosage: 3 DF/DAY
     Dates: start: 20040317
  8. LIMAPROST [Concomitant]
     Indication: HYPOAESTHESIA
     Dosage: 15 MG/DAY
     Route: 048
     Dates: start: 20050601, end: 20051120
  9. MELOXICAM [Concomitant]
     Indication: HYPOAESTHESIA
     Dosage: 10 MG/DAY
     Route: 048
     Dates: start: 20050601, end: 20051120
  10. TIZANIDINE HCL [Concomitant]
     Indication: HYPOAESTHESIA
     Dosage: 3 MG/DAY
     Route: 048
     Dates: start: 20050601, end: 20051120
  11. EXTRACT FROM INFLAMMATORY RABBIT SKIN INOCULATED BY VACCINIA VIRUS [Concomitant]
     Indication: HYPOAESTHESIA
     Dosage: 4 DF/DAY
     Route: 048
     Dates: start: 20050601
  12. IRSOGLADINE MALEATE [Concomitant]
     Indication: HYPOAESTHESIA
     Dosage: 4 MG/DAY
     Route: 048
     Dates: start: 20050601
  13. IBUDILAST [Concomitant]
     Indication: HYPOAESTHESIA
     Dosage: 30 MG/DAY
     Route: 048
     Dates: start: 20050601
  14. MIKELAN (NVO) [Suspect]
     Dosage: 2 DF/DAY
     Dates: start: 19960514, end: 20051121

REACTIONS (3)
  - DYSPNOEA [None]
  - GENERAL PHYSICAL HEALTH DETERIORATION [None]
  - RESPIRATORY FAILURE [None]
